FAERS Safety Report 16993407 (Version 1)
Quarter: 2019Q4

REPORT INFORMATION
  Report Type: Spontaneous
  Country: US (occurrence: US)
  Receive Date: 20191104
  Receipt Date: 20191104
  Transmission Date: 20200122
  Serious: No
  Sender: FDA-Public Use
  Company Number: None

PATIENT
  Age: 37 Year
  Sex: Male
  Weight: 112.5 kg

DRUGS (1)
  1. METOPROLOL 100 MG TWICE DAILY (GENERIC) [Suspect]
     Active Substance: METOPROLOL
     Indication: HYPERTENSION

REACTIONS (5)
  - Pain in extremity [None]
  - Peripheral arterial occlusive disease [None]
  - Intermittent claudication [None]
  - Musculoskeletal pain [None]
  - Muscle spasms [None]

NARRATIVE: CASE EVENT DATE: 20190901
